FAERS Safety Report 15254184 (Version 1)
Quarter: 2018Q3

REPORT INFORMATION
  Report Type: Spontaneous
  Country: SE (occurrence: SE)
  Receive Date: 20180808
  Receipt Date: 20180808
  Transmission Date: 20181010
  Serious: Yes (Life-Threatening, Hospitalization, Other)
  Sender: FDA-Public Use
  Company Number: SE-AUROBINDO-AUR-APL-2018-040494

PATIENT
  Age: 28 Year
  Sex: Female

DRUGS (4)
  1. AMLODIPINE [Suspect]
     Active Substance: AMLODIPINE BESYLATE
     Indication: PRODUCT USED FOR UNKNOWN INDICATION
     Dosage: IN TOTAL
     Route: 048
  2. METOPROLOL. [Suspect]
     Active Substance: METOPROLOL
     Dosage: IN TOTAL
     Route: 048
  3. AMLODIPINE [Suspect]
     Active Substance: AMLODIPINE BESYLATE
     Dosage: IN TOTAL
     Route: 048
  4. METOPROLOL. [Suspect]
     Active Substance: METOPROLOL
     Indication: PRODUCT USED FOR UNKNOWN INDICATION
     Dosage: IN TOTAL
     Route: 048

REACTIONS (3)
  - Shock [Recovered/Resolved]
  - Toxicity to various agents [Recovered/Resolved]
  - Overdose [Recovered/Resolved]
